FAERS Safety Report 16953384 (Version 1)
Quarter: 2019Q4

REPORT INFORMATION
  Report Type: Spontaneous
  Country: NL (occurrence: FR)
  Receive Date: 20191023
  Receipt Date: 20191023
  Transmission Date: 20200122
  Serious: Yes (Life-Threatening, Hospitalization)
  Sender: FDA-Public Use
  Company Number: FR-FRESENIUS KABI-FK201911718

PATIENT
  Age: 66 Year
  Sex: Male

DRUGS (3)
  1. CLINDAMYCIN KABI (NOT SPECIFIED) [Suspect]
     Active Substance: CLINDAMYCIN PHOSPHATE
     Indication: OSTEITIS
     Route: 048
     Dates: start: 20190816
  2. LEVOFLOXACIN. [Suspect]
     Active Substance: LEVOFLOXACIN
     Indication: OSTEITIS
     Route: 048
     Dates: start: 20190813
  3. RIFAMPICIN SODIUM [Suspect]
     Active Substance: RIFAMPIN SODIUM
     Indication: OSTEITIS
     Route: 048
     Dates: start: 20190813

REACTIONS (1)
  - Vitamin K deficiency [Recovering/Resolving]

NARRATIVE: CASE EVENT DATE: 20190902
